FAERS Safety Report 7113690-X (Version None)
Quarter: 2010Q4

REPORT INFORMATION
  Report Type: 
  Country: None (occurrence: None)
  Receive Date: 20101119
  Receipt Date: 20101105
  Transmission Date: 20110411
  Serious: Yes (Disabling)
  Sender: FDA-Public Use
  Company Number: GXKR2010CN12545

PATIENT
  Age: 51 Year
  Sex: Female

DRUGS (4)
  1. PACLITAXEL [Suspect]
     Indication: OVARIAN CANCER
     Dosage: 210 MG, UNK
     Route: 042
     Dates: start: 20080301, end: 20080801
  2. CISPLATIN [Suspect]
     Indication: OVARIAN CANCER
     Dosage: 80 MG, UNK
     Route: 042
     Dates: start: 20080301, end: 20080801
  3. ANTIALLERGIC AGENTS, EXCL CORTICOSTEROIDS [Concomitant]
     Dosage: ONCE A MONTH FOR 6 COURSES
     Route: 065
  4. HERBAL PREPARATION [Concomitant]
     Route: 065

REACTIONS (3)
  - BLINDNESS [None]
  - NONSPECIFIC REACTION [None]
  - PAIN OF SKIN [None]
